FAERS Safety Report 8856292 (Version 2)
Quarter: 2013Q1

REPORT INFORMATION
  Report Type: Spontaneous
  Country: US (occurrence: None)
  Receive Date: 20121022
  Receipt Date: 20121115
  Transmission Date: 20140127
  Serious: Yes (Other)
  Sender: FDA-Public Use
  Company Number: 7122468

PATIENT
  Age: 41 Year
  Sex: Female

DRUGS (4)
  1. RECOMBINANT HUMAN FOLLICLE-STIMULATING HORMONE (R-HFSH) (FOLLITROPIN ALFA) [Suspect]
     Indication: IN VITRO FERTILISATION
     Dosage: 300
  2. RECOMBINANT HUMAN FOLLICLE-STIMULATING HORMONE (R-HFSH) (FOLLITROPIN ALFA) [Suspect]
     Indication: IN VITRO FERTILISATION
     Dosage: 300
  3. PERGONAL [Suspect]
     Dosage: 150
  4. CHORIOGONADOTROPIN ALFA [Suspect]

REACTIONS (2)
  - Ectopic pregnancy [None]
  - Human chorionic gonadotropin decreased [None]
